FAERS Safety Report 4568046-0 (Version None)
Quarter: 2005Q1

REPORT INFORMATION
  Report Type: 
  Country: None (occurrence: None)
  Receive Date: 20050128
  Receipt Date: 20050125
  Transmission Date: 20050727
  Serious: Yes (Hospitalization, Other)
  Sender: FDA-Public Use
  Company Number: DEWYE344217JAN05

PATIENT
  Age: 39 Year
  Sex: Female

DRUGS (2)
  1. VENLAFAXINE HCL [Suspect]
     Dosage: 6 CAPSULES 150MG EACH ORAL
     Route: 048
     Dates: start: 20050115, end: 20050115
  2. ALCOHOL (ETHANOL, , 0) [Suspect]
     Dosage: 3 GLASSES OF SPARKLING WINE AND 1 BOTTLE OF WINE ORAL
     Route: 048
     Dates: start: 20050115, end: 20050115

REACTIONS (2)
  - INTENTIONAL MISUSE [None]
  - TACHYCARDIA [None]
